FAERS Safety Report 6180018-1 (Version None)
Quarter: 2009Q2

REPORT INFORMATION
  Report Type: 
  Country: None (occurrence: None)
  Receive Date: 20090505
  Receipt Date: 20090501
  Transmission Date: 20091009
  Serious: Yes (Life-Threatening, Hospitalization, Other)
  Sender: FDA-Public Use
  Company Number: JP-CUBIST-2009S1000167

PATIENT
  Age: 37 Year
  Sex: Male
  Weight: 92 kg

DRUGS (13)
  1. DAPTOMYCIN [Suspect]
     Indication: STAPHYLOCOCCAL INFECTION
     Route: 042
     Dates: start: 20090425, end: 20090425
  2. DAPTOMYCIN [Suspect]
     Indication: SOFT TISSUE INFECTION
     Route: 042
     Dates: start: 20090425, end: 20090425
  3. DAPTOMYCIN [Suspect]
     Route: 042
     Dates: start: 20090425, end: 20090425
  4. DAPTOMYCIN [Suspect]
     Route: 042
     Dates: start: 20090425, end: 20090425
  5. ACECOL [Concomitant]
     Route: 048
     Dates: start: 20090330, end: 20090425
  6. ASPIRIN [Concomitant]
     Route: 048
     Dates: start: 20090330
  7. PARIET [Concomitant]
     Route: 048
     Dates: start: 20090330
  8. ANCARON [Concomitant]
     Route: 048
     Dates: start: 20090330
  9. ARTIST [Concomitant]
     Route: 048
     Dates: start: 20090330, end: 20090425
  10. EPADEL [Concomitant]
     Route: 048
     Dates: start: 20090330
  11. BIFIDOBACTERIUM BIFIDUM [Concomitant]
     Route: 048
     Dates: start: 20090330
  12. ZYRTEC [Concomitant]
     Route: 048
     Dates: start: 20090330
  13. LENDORMIN [Concomitant]
     Route: 048
     Dates: start: 20090330

REACTIONS (1)
  - ANAPHYLACTIC SHOCK [None]
